FAERS Safety Report 24528674 (Version 1)
Quarter: 2024Q4

REPORT INFORMATION
  Report Type: Spontaneous
  Country: US (occurrence: US)
  Receive Date: 20241021
  Receipt Date: 20241021
  Transmission Date: 20250115
  Serious: Yes (Death, Other)
  Sender: PFIZER
  Company Number: US-PFIZER INC-202400279966

PATIENT
  Age: 92 Year
  Sex: Male
  Weight: 54.422 kg

DRUGS (1)
  1. VYNDAMAX [Suspect]
     Active Substance: TAFAMIDIS
     Indication: Cardiac disorder
     Dosage: 61MG; IT WAS TAKEN ONE TIME A DAY BY MOUTH
     Route: 048
     Dates: start: 2022

REACTIONS (1)
  - Cardiac failure [Fatal]
